FAERS Safety Report 4870018-3 (Version None)
Quarter: 2005Q4

REPORT INFORMATION
  Report Type: 
  Country: None (occurrence: None)
  Receive Date: 20051223
  Receipt Date: 20051220
  Transmission Date: 20060501
  Serious: Yes (Hospitalization)
  Sender: FDA-Public Use
  Company Number: HQWYE077219DEC05

PATIENT
  Sex: Female
  Weight: 31.13 kg

DRUGS (1)
  1. EFFEXOR XR [Suspect]
     Indication: DEPRESSION
     Dosage: 75 MG 1X PER 1 DAY, ORAL
     Route: 048
     Dates: start: 20051001

REACTIONS (5)
  - AREFLEXIA [None]
  - FEEDING DISORDER NEONATAL [None]
  - HYPERBILIRUBINAEMIA NEONATAL [None]
  - LETHARGY [None]
  - NERVOUS SYSTEM DISORDER [None]
